FAERS Safety Report 9217120 (Version 2)
Quarter: 2013Q4

REPORT INFORMATION
  Report Type: Spontaneous
  Country: DK (occurrence: GB)
  Receive Date: 20130408
  Receipt Date: 20131011
  Transmission Date: 20140711
  Serious: Yes (Hospitalization)
  Sender: FDA-Public Use
  Company Number: GB-FRI-1000044035

PATIENT
  Age: 83 Year
  Sex: Female

DRUGS (11)
  1. CITALOPRAM [Suspect]
     Indication: DEPRESSION
     Dosage: 20 MG
     Route: 048
     Dates: start: 201207
  2. AMLODIPINE [Suspect]
     Dosage: 5 MG
  3. ASPIRIN [Suspect]
     Dosage: 75 MG
  4. BISOPROLOL [Suspect]
     Dosage: 5 MG
  5. DOXAZOSIN MESILATE [Suspect]
     Dosage: 1 MG
     Dates: start: 200710
  6. DOXAZOSIN MESILATE [Suspect]
     Dosage: 8 MG
  7. FUROSEMIDE [Suspect]
     Dosage: 80 MG
  8. TELMISARTAN [Suspect]
     Dosage: 2 MG
     Dates: start: 200710
  9. TELMISARTAN [Suspect]
     Dosage: 80 MG
  10. ATENOLOL [Suspect]
     Indication: HYPERTENSION
     Dosage: 25 MG
     Dates: start: 201209, end: 201209
  11. ATENOLOL [Suspect]
     Dosage: 50 MG
     Dates: start: 201209

REACTIONS (7)
  - Pulmonary congestion [Unknown]
  - Dyspnoea [Unknown]
  - Fluid overload [Unknown]
  - Blood cholesterol increased [Unknown]
  - Weight loss poor [Unknown]
  - Low density lipoprotein increased [Unknown]
  - Oedema [Unknown]
